FAERS Safety Report 25617368 (Version 2)
Quarter: 2025Q3

REPORT INFORMATION
  Report Type: Spontaneous
  Country: US (occurrence: US)
  Receive Date: 20250729
  Receipt Date: 20250908
  Transmission Date: 20251020
  Serious: Yes (Life-Threatening, Hospitalization, Other)
  Sender: AUROBINDO
  Company Number: US-MLMSERVICE-20250710-PI572273-00121-1

PATIENT
  Age: 54 Year
  Sex: Male

DRUGS (4)
  1. DILTIAZEM [Suspect]
     Active Substance: DILTIAZEM
     Indication: Product used for unknown indication
     Route: 065
  2. METOPROLOL [Suspect]
     Active Substance: METOPROLOL
     Indication: Product used for unknown indication
     Route: 065
  3. GLUCAGON [Suspect]
     Active Substance: GLUCAGON
     Indication: Product used for unknown indication
     Route: 065
  4. DOPAMINE [Concomitant]
     Active Substance: DOPAMINE HYDROCHLORIDE
     Indication: Hyperkalaemia
     Route: 065

REACTIONS (4)
  - BRASH syndrome [Unknown]
  - Multiple organ dysfunction syndrome [Unknown]
  - Metabolic acidosis [Recovered/Resolved]
  - Overdose [Unknown]
